FAERS Safety Report 14801611 (Version 2)
Quarter: 2018Q2

REPORT INFORMATION
  Report Type: Spontaneous
  Country: US (occurrence: US)
  Receive Date: 20180424
  Receipt Date: 20180530
  Transmission Date: 20180711
  Serious: Yes (Hospitalization)
  Sender: FDA-Public Use
  Company Number: US-OTSUKA-2018_004667

PATIENT
  Age: 50 Year
  Sex: Male
  Weight: 68.03 kg

DRUGS (13)
  1. XANAX [Concomitant]
     Active Substance: ALPRAZOLAM
     Dosage: 1 MG, 1-2 TIMES AS NEEDED
     Route: 065
     Dates: start: 20180213
  2. GABAPENTIN. [Concomitant]
     Active Substance: GABAPENTIN
     Dosage: 400 MG, QID
     Route: 048
     Dates: start: 20180213
  3. LEXAPRO [Concomitant]
     Active Substance: ESCITALOPRAM OXALATE
     Indication: PRODUCT USED FOR UNKNOWN INDICATION
     Dosage: 1 DF, QD
     Route: 048
     Dates: start: 20180426
  4. REXULTI [Suspect]
     Active Substance: BREXPIPRAZOLE
     Dosage: 3 MG, QD (1 TABLET BY ORAL ROUTE PER DAY)
     Route: 048
     Dates: end: 20180213
  5. PAXIL [Suspect]
     Active Substance: PAROXETINE HYDROCHLORIDE
     Indication: DEPRESSED MOOD
     Dosage: 40 MG, QD
     Route: 048
     Dates: start: 20170512
  6. XANAX [Concomitant]
     Active Substance: ALPRAZOLAM
     Indication: ANXIETY
     Dosage: 1 MG, 1-2 TIMES AS NEEDED
     Route: 065
     Dates: start: 20180426
  7. TRAZODONE [Suspect]
     Active Substance: TRAZODONE HYDROCHLORIDE
     Indication: PRODUCT USED FOR UNKNOWN INDICATION
     Dosage: UNK
     Route: 065
  8. GABAPENTIN. [Concomitant]
     Active Substance: GABAPENTIN
     Indication: PRODUCT USED FOR UNKNOWN INDICATION
     Dosage: 400 MG, QID
     Route: 048
     Dates: start: 20180426
  9. REXULTI [Suspect]
     Active Substance: BREXPIPRAZOLE
     Indication: MAJOR DEPRESSION
     Dosage: 3 MG, QD
     Route: 065
     Dates: start: 20160908
  10. REXULTI [Suspect]
     Active Substance: BREXPIPRAZOLE
     Dosage: 2 MG, QD
     Route: 065
     Dates: start: 20160521, end: 20160908
  11. PAXIL [Suspect]
     Active Substance: PAROXETINE HYDROCHLORIDE
     Dosage: UNK
     Route: 065
     Dates: end: 20180116
  12. TRAZODONE [Suspect]
     Active Substance: TRAZODONE HYDROCHLORIDE
     Dosage: ( 1/2-1  TABLET AT BEDTIME )
     Route: 048
     Dates: start: 20180426
  13. TRAZODONE [Suspect]
     Active Substance: TRAZODONE HYDROCHLORIDE
     Dosage: 1 DF, 1-2 TIMES DAILY
     Route: 048
     Dates: start: 20170512

REACTIONS (17)
  - Arthralgia [Recovering/Resolving]
  - Drug ineffective [Unknown]
  - Decreased interest [Recovered/Resolved]
  - Dehydration [Unknown]
  - Apathy [Recovered/Resolved]
  - Vomiting [Unknown]
  - Frustration tolerance decreased [Unknown]
  - Fatigue [Unknown]
  - Incorrect dose administered [Unknown]
  - Initial insomnia [Recovering/Resolving]
  - Obsessive thoughts [Not Recovered/Not Resolved]
  - Libido decreased [Not Recovered/Not Resolved]
  - Thinking abnormal [Unknown]
  - Pain [Unknown]
  - Therapy cessation [Unknown]
  - Asthenia [Not Recovered/Not Resolved]
  - Myalgia [Unknown]

NARRATIVE: CASE EVENT DATE: 201712
